FAERS Safety Report 21922939 (Version 6)
Quarter: 2024Q1

REPORT INFORMATION
  Report Type: Spontaneous
  Country: US (occurrence: US)
  Receive Date: 20230128
  Receipt Date: 20240102
  Transmission Date: 20240410
  Serious: No
  Sender: FDA-Public Use
  Company Number: US-BIOGEN-2022BI01170573

PATIENT
  Age: 66 Year
  Sex: Female

DRUGS (2)
  1. VUMERITY [Suspect]
     Active Substance: DIROXIMEL FUMARATE
     Indication: Multiple sclerosis
     Dosage: FOR 7 DAYS
     Route: 050
     Dates: start: 20221109, end: 202211
  2. VUMERITY [Suspect]
     Active Substance: DIROXIMEL FUMARATE
     Route: 050
     Dates: start: 20221115, end: 20230511

REACTIONS (11)
  - Flatulence [Not Recovered/Not Resolved]
  - Faeces soft [Unknown]
  - Weight decreased [Unknown]
  - Dairy intolerance [Unknown]
  - Palpitations [Unknown]
  - Dehydration [Unknown]
  - White blood cell count decreased [Unknown]
  - Hypovitaminosis [Recovered/Resolved]
  - Diarrhoea [Not Recovered/Not Resolved]
  - Flushing [Recovered/Resolved]
  - Pruritus [Recovered/Resolved]

NARRATIVE: CASE EVENT DATE: 20221101
